FAERS Safety Report 6943926-7 (Version None)
Quarter: 2010Q3

REPORT INFORMATION
  Report Type: 
  Country: None (occurrence: None)
  Receive Date: 20100826
  Receipt Date: 20100825
  Transmission Date: 20110219
  Serious: Yes (Hospitalization)
  Sender: FDA-Public Use
  Company Number: B0670488A

PATIENT
  Sex: Female

DRUGS (7)
  1. CEFTAZIDIME [Suspect]
     Indication: PRODUCT USED FOR UNKNOWN INDICATION
     Route: 042
     Dates: start: 20100712, end: 20100728
  2. RIFADIN [Suspect]
     Indication: PRODUCT USED FOR UNKNOWN INDICATION
     Dosage: 1.2G PER DAY
     Route: 042
     Dates: start: 20100724, end: 20100726
  3. ZYVOX [Suspect]
     Indication: PRODUCT USED FOR UNKNOWN INDICATION
     Route: 042
     Dates: start: 20100722, end: 20100802
  4. LANSOPRAZOLE [Concomitant]
     Route: 065
     Dates: end: 20100729
  5. PIPERACILLIN AND TAZOBACTAM [Concomitant]
     Route: 065
     Dates: end: 20100802
  6. TRIFLUCAN [Concomitant]
     Route: 065
     Dates: end: 20100802
  7. TAHOR [Concomitant]
     Route: 065

REACTIONS (4)
  - CONDITION AGGRAVATED [None]
  - FACE OEDEMA [None]
  - RASH MACULO-PAPULAR [None]
  - SKIN EXFOLIATION [None]
